FAERS Safety Report 10251525 (Version 1)
Quarter: 2014Q2

REPORT INFORMATION
  Report Type: Spontaneous
  Country: GB (occurrence: GB)
  Receive Date: 20140623
  Receipt Date: 20140623
  Transmission Date: 20141212
  Serious: Yes (Hospitalization, Disabling)
  Sender: FDA-Public Use
  Company Number: GB-JNJFOC-20140608190

PATIENT
  Age: 86 Year
  Sex: Male
  Weight: 79 kg

DRUGS (8)
  1. XARELTO [Suspect]
     Indication: CEREBROVASCULAR ACCIDENT PROPHYLAXIS
     Route: 048
     Dates: start: 20140510, end: 20140512
  2. XARELTO [Suspect]
     Indication: ATRIAL FIBRILLATION
     Route: 048
     Dates: start: 20140510, end: 20140512
  3. ATORVASTATIN [Concomitant]
     Route: 065
  4. BUMETANIDE [Concomitant]
     Route: 065
  5. CARVEDILOL [Concomitant]
     Route: 065
  6. DIGOXIN [Concomitant]
     Route: 065
  7. LANSOPRAZOLE [Concomitant]
     Route: 065
  8. LOSARTAN [Concomitant]
     Route: 065

REACTIONS (1)
  - Arthralgia [Not Recovered/Not Resolved]
